FAERS Safety Report 24685488 (Version 1)
Quarter: 2024Q4

REPORT INFORMATION
  Report Type: Report from Study
  Country: US (occurrence: US)
  Receive Date: 20241202
  Receipt Date: 20241202
  Transmission Date: 20250115
  Serious: Yes (Death, Other)
  Sender: TEVA
  Company Number: US-TEVA-VS-3269747

PATIENT
  Age: 55 Year
  Sex: Female

DRUGS (4)
  1. POSACONAZOLE [Suspect]
     Active Substance: POSACONAZOLE
     Indication: Antifungal prophylaxis
     Route: 065
  2. VENETOCLAX [Suspect]
     Active Substance: VENETOCLAX
     Indication: Philadelphia chromosome positive
     Route: 065
  3. PONATINIB [Suspect]
     Active Substance: PONATINIB
     Indication: Philadelphia chromosome positive
     Route: 065
  4. DECITABINE [Suspect]
     Active Substance: DECITABINE
     Indication: Philadelphia chromosome positive
     Route: 065

REACTIONS (2)
  - Drug ineffective [Fatal]
  - Hepatotoxicity [Recovered/Resolved]
